FAERS Safety Report 8760481 (Version 2)
Quarter: 2012Q4

REPORT INFORMATION
  Report Type: 
  Country: US (occurrence: US)
  Receive Date: 20120830
  Receipt Date: 20120906
  Transmission Date: 20130627
  Serious: Yes (Disabling, Other)
  Sender: FDA-Public Use
  Company Number: US-UCBSA-063014

PATIENT
  Age: 64 None
  Sex: Female

DRUGS (7)
  1. CIMZIA [Suspect]
     Indication: CROHN^S DISEASE
     Route: 058
     Dates: start: 20100709
  2. CIMZIA [Suspect]
     Indication: CROHN^S DISEASE
     Route: 058
     Dates: start: 201110, end: 201204
  3. CIMZIA [Suspect]
     Indication: CROHN^S DISEASE
     Route: 058
     Dates: start: 20120409
  4. FOLIC ACID [Concomitant]
  5. VITAMIN D [Concomitant]
     Dosage: 2000 U
  6. SAINT JOHNS WORT [Concomitant]
  7. COLESTID [Concomitant]
     Dosage: 1 GRAM AS DIRECTED

REACTIONS (12)
  - Disability [Not Recovered/Not Resolved]
  - Weight decreased [Not Recovered/Not Resolved]
  - Crohn^s disease [Unknown]
  - Anxiety [Not Recovered/Not Resolved]
  - Diet refusal [Not Recovered/Not Resolved]
  - Heart rate increased [Unknown]
  - Malaise [Not Recovered/Not Resolved]
  - Fatigue [Unknown]
  - Asthenia [Unknown]
  - Fall [Unknown]
  - Urinary tract infection [Unknown]
  - Feeling abnormal [Unknown]
